FAERS Safety Report 6058203-9 (Version None)
Quarter: 2009Q1

REPORT INFORMATION
  Report Type: 
  Country: None (occurrence: None)
  Receive Date: 20090130
  Receipt Date: 20090119
  Transmission Date: 20090719
  Serious: Yes (Death)
  Sender: FDA-Public Use
  Company Number: FR-PFIZER INC-2009160049

PATIENT

DRUGS (10)
  1. MORPHINE SULFATE [Suspect]
     Dosage: UNK
     Route: 048
     Dates: end: 20080106
  2. ALPRAZOLAM [Suspect]
     Dosage: UNK
     Route: 048
     Dates: end: 20080106
  3. OXYCONTIN [Suspect]
     Dosage: UNK
     Route: 048
     Dates: end: 20080106
  4. IMOVANE [Suspect]
     Dosage: UNK
     Route: 048
     Dates: end: 20080106
  5. LORMETAZEPAM [Suspect]
     Dosage: UNK
     Route: 048
     Dates: end: 20080106
  6. CYAMEMAZINE [Suspect]
     Dosage: UNK
     Route: 048
     Dates: end: 20080106
  7. LORAZEPAM [Suspect]
     Dosage: UNK
     Route: 048
     Dates: end: 20080106
  8. CITALOPRAM [Suspect]
     Dosage: UNK
     Route: 048
     Dates: end: 20080106
  9. FLUOXETINE [Suspect]
     Dosage: UNK
     Route: 048
     Dates: end: 20080106
  10. ETHYLMORPHINE [Suspect]
     Dosage: UNK
     Route: 048
     Dates: end: 20080106

REACTIONS (1)
  - DEATH [None]
